FAERS Safety Report 8139087-1 (Version None)
Quarter: 2012Q1

REPORT INFORMATION
  Report Type: 
  Country: None (occurrence: None)
  Receive Date: 20120215
  Receipt Date: 20120213
  Transmission Date: 20120608
  Serious: Yes (Hospitalization)
  Sender: FDA-Public Use
  Company Number: ES-PFIZER INC-2012037974

PATIENT
  Age: 81 Year
  Sex: Male

DRUGS (6)
  1. DIGOXIN [Interacting]
     Indication: ATRIAL FIBRILLATION
     Dosage: 1.3 MG, WEEKLY
     Route: 048
     Dates: start: 20090109, end: 20110113
  2. LEVOTHYROXINE SODIUM [Concomitant]
     Indication: HYPOTHYROIDISM
     Dosage: 100 UG, 1X/DAY
     Route: 048
     Dates: start: 20090916
  3. FUROSEMIDE [Concomitant]
     Indication: PROPHYLAXIS
     Dosage: 40 MG, 1X/DAY
     Route: 048
     Dates: start: 20090916
  4. AMILORIDE HCL AND HYDROCHLOROTHIAZIDE [Concomitant]
     Indication: HYPERTENSION
     Dosage: 50 MG, 1X/DAY
     Route: 048
     Dates: start: 20090109, end: 20110113
  5. ALDACTONE [Suspect]
     Indication: HYPERTENSION
     Dosage: 50 MG, 1X/DAY
     Route: 048
     Dates: start: 20090929, end: 20110113
  6. WARFARIN SODIUM [Concomitant]
     Indication: PROPHYLAXIS
     Route: 048

REACTIONS (3)
  - TOXICITY TO VARIOUS AGENTS [None]
  - BRADYCARDIA [None]
  - DRUG INTERACTION [None]
